FAERS Safety Report 18783387 (Version 3)
Quarter: 2021Q1

REPORT INFORMATION
  Report Type: Report from Study
  Country: NG (occurrence: NG)
  Receive Date: 20210125
  Receipt Date: 20210225
  Transmission Date: 20210419
  Serious: Yes (Death, Hospitalization)
  Sender: FDA-Public Use
  Company Number: NVSC2021NG014668

PATIENT
  Age: 45 Year
  Sex: Male

DRUGS (2)
  1. UPERIO [Suspect]
     Active Substance: SACUBITRIL\VALSARTAN
     Indication: CARDIAC FAILURE
  2. UPERIO [Suspect]
     Active Substance: SACUBITRIL\VALSARTAN
     Indication: CARDIAC FAILURE
     Dosage: 25 MG, BID
     Route: 048
     Dates: start: 20210114

REACTIONS (5)
  - Embolic stroke [Fatal]
  - Incorrect dose administered [Not Recovered/Not Resolved]
  - Prescribed underdose [Not Recovered/Not Resolved]
  - Cardiac failure [Fatal]
  - Dyspnoea [Fatal]

NARRATIVE: CASE EVENT DATE: 202101
